FAERS Safety Report 12138420 (Version 1)
Quarter: 2016Q1

REPORT INFORMATION
  Report Type: Spontaneous
  Country: US (occurrence: US)
  Receive Date: 20160302
  Receipt Date: 20160302
  Transmission Date: 20160526
  Serious: Yes (Other)
  Sender: FDA-Public Use
  Company Number: US-UNICHEM LABORATORIES LIMITED-UCM201602-000022

PATIENT
  Age: 67 Year
  Sex: Female

DRUGS (3)
  1. LURASIDONE [Concomitant]
     Active Substance: LURASIDONE
  2. RISPERIDONE. [Suspect]
     Active Substance: RISPERIDONE
  3. DIVALPROEX SODIUM. [Suspect]
     Active Substance: DIVALPROEX SODIUM
     Indication: BIPOLAR DISORDER

REACTIONS (1)
  - Parkinsonism [Recovered/Resolved]
